FAERS Safety Report 5339401-6 (Version None)
Quarter: 2007Q2

REPORT INFORMATION
  Report Type: 
  Country: None (occurrence: None)
  Receive Date: 20070322
  Receipt Date: 20061030
  Transmission Date: 20071010
  Serious: Yes (Other)
  Sender: FDA-Public Use
  Company Number: 200613942BCC

PATIENT
  Age: 41 Year
  Sex: Female
  Weight: 56.6996 kg

DRUGS (2)
  1. ALEVE [Suspect]
     Indication: HEADACHE
     Dosage: 440 MG, TOTAL DAILY, ORAL
     Route: 048
     Dates: start: 20060801
  2. ADVAIR DISKUS 100/50 [Concomitant]

REACTIONS (8)
  - BLOOD PRESSURE ABNORMAL [None]
  - BLOOD PRESSURE DECREASED [None]
  - DYSPNOEA [None]
  - GENERALISED ERYTHEMA [None]
  - PRURITUS [None]
  - SWELLING FACE [None]
  - URTICARIA GENERALISED [None]
  - VOMITING [None]
